FAERS Safety Report 8059832-3 (Version None)
Quarter: 2012Q1

REPORT INFORMATION
  Report Type: 
  Country: None (occurrence: None)
  Receive Date: 20120120
  Receipt Date: 20120113
  Transmission Date: 20120608
  Serious: Yes (Hospitalization, Other)
  Sender: FDA-Public Use
  Company Number: US-ABBOTT-12P-163-0892780-00

PATIENT

DRUGS (3)
  1. ENBREL [Suspect]
     Indication: PRODUCT USED FOR UNKNOWN INDICATION
  2. VICODIN [Concomitant]
     Indication: INSOMNIA
     Dosage: PERIODICALLY
  3. HUMIRA [Suspect]
     Indication: PRODUCT USED FOR UNKNOWN INDICATION

REACTIONS (3)
  - BONE MARROW DISORDER [None]
  - ANAEMIA [None]
  - LYMPHOMA [None]
